FAERS Safety Report 8058049-6 (Version None)
Quarter: 2012Q1

REPORT INFORMATION
  Report Type: 
  Country: None (occurrence: None)
  Receive Date: 20120118
  Receipt Date: 20120118
  Transmission Date: 20120608
  Serious: Yes (Other)
  Sender: FDA-Public Use
  Company Number: None

PATIENT
  Age: 86 Year
  Sex: Female
  Weight: 57.1532 kg

DRUGS (1)
  1. FORTEO [Suspect]
     Indication: OSTEOPOROSIS
     Dosage: 20 MCGM DAILY SQ
     Route: 058
     Dates: start: 20100827, end: 20120105

REACTIONS (3)
  - JOINT SWELLING [None]
  - CELLULITIS [None]
  - CALCIPHYLAXIS [None]
